FAERS Safety Report 10353896 (Version 1)
Quarter: 2014Q3

REPORT INFORMATION
  Report Type: Spontaneous
  Country: US (occurrence: None)
  Receive Date: 20140729
  Receipt Date: 20140729
  Transmission Date: 20150326
  Serious: No
  Sender: FDA-Public Use
  Company Number: None

PATIENT
  Age: 62 Year
  Sex: Male
  Weight: 115.45 kg

DRUGS (1)
  1. ERBITUX [Suspect]
     Active Substance: CETUXIMAB
     Dosage: APPROXIMATE DOSE PER INFUSION NURSES WAS 60-80 MG

REACTIONS (13)
  - Urticaria [None]
  - Infusion related reaction [None]
  - Nail bed disorder [None]
  - Rash [None]
  - Dyspnoea [None]
  - Chest discomfort [None]
  - Vision blurred [None]
  - Pallor [None]
  - Nausea [None]
  - Cough [None]
  - Feeling hot [None]
  - Defaecation urgency [None]
  - Throat tightness [None]

NARRATIVE: CASE EVENT DATE: 20140722
